FAERS Safety Report 24458606 (Version 1)
Quarter: 2024Q4

REPORT INFORMATION
  Report Type: Spontaneous
  Country: LV (occurrence: LV)
  Receive Date: 20241018
  Receipt Date: 20241018
  Transmission Date: 20250115
  Serious: No
  Sender: ROCHE
  Company Number: LV-ROCHE-3521922

PATIENT
  Age: 31 Year
  Sex: Male
  Weight: 70.0 kg

DRUGS (7)
  1. RITUXIMAB [Suspect]
     Active Substance: RITUXIMAB
     Indication: Castleman^s disease
     Dosage: RECENT DOSES: //2015, //2018, //2022
     Route: 065
     Dates: start: 2011
  2. OBINUTUZUMAB [Suspect]
     Active Substance: OBINUTUZUMAB
     Indication: Castleman^s disease
     Route: 065
     Dates: start: 2015
  3. VINCRISTINE [Concomitant]
     Active Substance: VINCRISTINE
     Dates: start: 2015
  4. CYCLOPHOSPHAMIDE [Concomitant]
     Active Substance: CYCLOPHOSPHAMIDE
     Dosage: 600 MG FOR ONE TIME, 3000 MG PER COURSE
     Dates: start: 2015
  5. ETOPOSIDE [Concomitant]
     Active Substance: ETOPOSIDE
  6. METHYLPREDNISOLONE [Concomitant]
     Active Substance: METHYLPREDNISOLONE
     Dates: start: 2011
  7. TOCILIZUMAB [Concomitant]
     Active Substance: TOCILIZUMAB
     Route: 065
     Dates: start: 20240202

REACTIONS (2)
  - Off label use [Unknown]
  - No adverse event [Unknown]

NARRATIVE: CASE EVENT DATE: 20110101
